FAERS Safety Report 9743256 (Version 2)
Quarter: 2013Q4

REPORT INFORMATION
  Report Type: Spontaneous
  Country: US (occurrence: US)
  Receive Date: 20131210
  Receipt Date: 20131210
  Transmission Date: 20140711
  Serious: Yes (Hospitalization)
  Sender: FDA-Public Use
  Company Number: US-GILEAD-2009-0025108

PATIENT
  Age: 69 Year
  Sex: Female
  Weight: 72.12 kg

DRUGS (12)
  1. LETAIRIS [Suspect]
     Indication: PULMONARY ARTERIAL HYPERTENSION
     Route: 048
     Dates: start: 20090902, end: 20091008
  2. REVATIO [Concomitant]
  3. WARFARIN [Concomitant]
  4. LASIX [Concomitant]
  5. COREG [Concomitant]
  6. SYNTHROID [Concomitant]
  7. ANTIVERT [Concomitant]
  8. LOMOTIL [Concomitant]
  9. CITALOPRAM [Concomitant]
  10. KLONOPIN [Concomitant]
  11. ALLOPURINOL [Concomitant]
  12. FERROUS SULFATE [Concomitant]

REACTIONS (2)
  - Fluid retention [Recovered/Resolved]
  - Oedema peripheral [Recovered/Resolved]
